FAERS Safety Report 9818763 (Version 1)
Quarter: 2014Q1

REPORT INFORMATION
  Report Type: Spontaneous
  Country: US (occurrence: US)
  Receive Date: 20140115
  Receipt Date: 20140115
  Transmission Date: 20141002
  Serious: No
  Sender: FDA-Public Use
  Company Number: US-GILEAD-2011-0039979

PATIENT
  Sex: Female

DRUGS (1)
  1. CAYSTON [Suspect]
     Indication: CYSTIC FIBROSIS
     Dates: start: 20110524

REACTIONS (4)
  - Dyspnoea [Unknown]
  - Vomiting [Unknown]
  - Cough [Unknown]
  - Throat irritation [Unknown]
